FAERS Safety Report 4269957-6 (Version None)
Quarter: 2004Q1

REPORT INFORMATION
  Report Type: 
  Country: None (occurrence: None)
  Receive Date: 20040112
  Receipt Date: 20031230
  Transmission Date: 20041129
  Serious: Yes (Hospitalization)
  Sender: FDA-Public Use
  Company Number: US-JNJFOC-20040100316

PATIENT
  Age: 72 Year
  Sex: Female
  Weight: 59.4212 kg

DRUGS (13)
  1. INFLIXIMAB (INFLIXIMAB RECOMBINANT) LYOPHILIZED POWDER [Suspect]
     Indication: RHEUMATOID ARTHRITIS
     Dosage: INTRAVENOUS
     Route: 042
     Dates: start: 20010623
  2. METHOTREXATE [Concomitant]
  3. DAYPRO [Concomitant]
  4. PREDNISONE [Concomitant]
  5. HYDROCHLOROTHIAZIDE [Concomitant]
  6. FOLIC ACID [Concomitant]
  7. LIPITOR [Concomitant]
  8. ASPIRIN [Concomitant]
  9. FOSAMAX [Concomitant]
  10. OSCAL (CALCIUM CARBONATE) [Concomitant]
  11. SYNTHROID (LEVOHYROXINE SODIUM) [Concomitant]
  12. NEURONTIN [Concomitant]
  13. LIDODERM (LIDOCAINE) [Concomitant]

REACTIONS (2)
  - AMAUROSIS FUGAX [None]
  - CAROTID ARTERY OCCLUSION [None]
